APPROVED DRUG PRODUCT: GALANTAMINE HYDROBROMIDE
Active Ingredient: GALANTAMINE HYDROBROMIDE
Strength: EQ 12MG BASE
Dosage Form/Route: TABLET;ORAL
Application: A077589 | Product #003 | TE Code: AB
Applicant: SANDOZ INC
Approved: Jun 22, 2009 | RLD: No | RS: No | Type: RX